FAERS Safety Report 6841139-0 (Version None)
Quarter: 2010Q3

REPORT INFORMATION
  Report Type: 
  Country: None (occurrence: None)
  Receive Date: 20100714
  Receipt Date: 20070628
  Transmission Date: 20110219
  Serious: No
  Sender: FDA-Public Use
  Company Number: US-PFIZER INC-2007054124

PATIENT
  Sex: Female
  Weight: 84.4 kg

DRUGS (10)
  1. CHANTIX [Suspect]
     Indication: SMOKING CESSATION THERAPY
     Dates: start: 20070605
  2. AVAPRO [Concomitant]
  3. COREG [Concomitant]
  4. SYNTHROID [Concomitant]
  5. XANAX [Concomitant]
  6. VITAMIN E [Concomitant]
  7. MULTI-VITAMINS [Concomitant]
  8. CALCIUM [Concomitant]
  9. DRUG, UNSPECIFIED [Concomitant]
  10. PROZAC [Concomitant]

REACTIONS (1)
  - RASH ERYTHEMATOUS [None]
